FAERS Safety Report 23229344 (Version 1)
Quarter: 2023Q4

REPORT INFORMATION
  Report Type: Spontaneous
  Country: CA (occurrence: CA)
  Receive Date: 20231127
  Receipt Date: 20231127
  Transmission Date: 20240110
  Serious: Yes (Hospitalization, Other)
  Sender: FDA-Public Use
  Company Number: CA-BoehringerIngelheim-2023-BI-274312

PATIENT
  Sex: Female

DRUGS (2)
  1. MICARDIS [Suspect]
     Active Substance: TELMISARTAN
     Indication: Product used for unknown indication
  2. ADALIMUMAB [Suspect]
     Active Substance: ADALIMUMAB\ISOPROPYL ALCOHOL
     Indication: Ankylosing spondylitis
     Dosage: FORM OF ADMINISTRATION- SOLUTION SUBCUTANEOUS
     Route: 058

REACTIONS (9)
  - Hyponatraemia [Recovered/Resolved]
  - Blood calcium decreased [Recovered/Resolved]
  - Blood phosphorus decreased [Recovered/Resolved]
  - Electrolyte imbalance [Recovered/Resolved]
  - Hypokalaemia [Recovered/Resolved]
  - Muscle spasms [Recovered/Resolved]
  - Nausea [Recovered/Resolved]
  - Vomiting [Recovered/Resolved]
  - Product substitution issue [Recovered/Resolved]
